FAERS Safety Report 5239824-X (Version None)
Quarter: 2007Q1

REPORT INFORMATION
  Report Type: 
  Country: None (occurrence: None)
  Receive Date: 20070216
  Receipt Date: 20070212
  Transmission Date: 20070707
  Serious: Yes (Death, Hospitalization, Other)
  Sender: FDA-Public Use
  Company Number: PT-BRISTOL-MYERS SQUIBB COMPANY-13668843

PATIENT
  Age: 70 Year
  Sex: Female

DRUGS (2)
  1. DASATINIB [Suspect]
     Dates: start: 20061207
  2. SUCRALFATE [Concomitant]
     Indication: EPIGASTRIC DISCOMFORT
     Dates: start: 20061228

REACTIONS (3)
  - ATRIAL FIBRILLATION [None]
  - GASTROINTESTINAL PERFORATION [None]
  - NEUTROPENIA [None]
